FAERS Safety Report 13506907 (Version 2)
Quarter: 2017Q2

REPORT INFORMATION
  Report Type: Report from Study
  Country: None (occurrence: US)
  Receive Date: 20170502
  Receipt Date: 20170503
  Transmission Date: 20170830
  Serious: Yes (Other)
  Sender: FDA-Public Use
  Company Number: US-ABBVIE-17K-163-1952364-00

PATIENT
  Age: 46 Year
  Sex: Female

DRUGS (3)
  1. HUMIRA [Suspect]
     Active Substance: ADALIMUMAB
     Indication: CROHN^S DISEASE
     Route: 058
     Dates: start: 20140523
  2. PREDNISONE. [Suspect]
     Active Substance: PREDNISONE
     Indication: SINUSITIS BACTERIAL
     Route: 065
     Dates: start: 2016, end: 2016
  3. PREDNISONE. [Suspect]
     Active Substance: PREDNISONE
     Indication: VIRAL UPPER RESPIRATORY TRACT INFECTION

REACTIONS (12)
  - Lichenoid keratosis [Not Recovered/Not Resolved]
  - Blindness [Recovered/Resolved with Sequelae]
  - Drug intolerance [Unknown]
  - Gastrooesophageal reflux disease [Unknown]
  - Glaucoma [Recovered/Resolved with Sequelae]
  - Injection site pain [Not Recovered/Not Resolved]
  - Sinusitis bacterial [Recovered/Resolved]
  - Drug effect incomplete [Not Recovered/Not Resolved]
  - Psoriasis [Unknown]
  - Viral upper respiratory tract infection [Recovered/Resolved]
  - Device issue [Recovered/Resolved]
  - Injection site haemorrhage [Not Recovered/Not Resolved]

NARRATIVE: CASE EVENT DATE: 20140523
